FAERS Safety Report 13611056 (Version 2)
Quarter: 2017Q3

REPORT INFORMATION
  Report Type: Spontaneous
  Country: US (occurrence: US)
  Receive Date: 20170605
  Receipt Date: 20170814
  Transmission Date: 20171127
  Serious: Yes (Death, Hospitalization)
  Sender: FDA-Public Use
  Company Number: US-UCBSA-2017021766

PATIENT
  Age: 67 Year
  Sex: Male

DRUGS (1)
  1. CIMZIA [Suspect]
     Active Substance: CERTOLIZUMAB PEGOL
     Indication: RHEUMATOID ARTHRITIS
     Dosage: 200 MG, EV 2 WEEKS(QOW)
     Route: 058
     Dates: start: 20150826, end: 20170511

REACTIONS (3)
  - Back pain [Unknown]
  - Pneumonia bacterial [Fatal]
  - Meningitis [Fatal]

NARRATIVE: CASE EVENT DATE: 20170503
